FAERS Safety Report 25088827 (Version 1)
Quarter: 2025Q1

REPORT INFORMATION
  Report Type: Spontaneous
  Country: GB (occurrence: GB)
  Receive Date: 20250318
  Receipt Date: 20250318
  Transmission Date: 20250409
  Serious: Yes (Other)
  Sender: TORRENT PHARMA INC.
  Company Number: None

PATIENT
  Age: 22 Year

DRUGS (1)
  1. DULOXETINE [Suspect]
     Active Substance: DULOXETINE
     Indication: Product used for unknown indication
     Route: 065
     Dates: end: 20240901

REACTIONS (9)
  - Hyperhidrosis [Recovering/Resolving]
  - Hot flush [Unknown]
  - Emotional distress [Unknown]
  - Cognitive disorder [Unknown]
  - Mental impairment [Unknown]
  - Dry mouth [Unknown]
  - Fatigue [Unknown]
  - Dry eye [Unknown]
  - Restless legs syndrome [Unknown]
